FAERS Safety Report 20812442 (Version 1)
Quarter: 2022Q2

REPORT INFORMATION
  Report Type: Spontaneous
  Country: KR (occurrence: KR)
  Receive Date: 20220511
  Receipt Date: 20220511
  Transmission Date: 20220721
  Serious: Yes (Other)
  Sender: FDA-Public Use
  Company Number: KR-ALKEM LABORATORIES LIMITED-KR-ALKEM-2022-04171

PATIENT
  Age: 68 Year
  Sex: Male

DRUGS (4)
  1. METFORMIN HYDROCHLORIDE [Suspect]
     Active Substance: METFORMIN HYDROCHLORIDE
     Indication: Diabetes mellitus
     Dosage: 1000 MILLIGRAM, BID
     Route: 065
  2. GLIMEPIRIDE [Concomitant]
     Active Substance: GLIMEPIRIDE
     Indication: Diabetes mellitus
     Dosage: 2 MILLIGRAM, QD (ONCE A DAY)
     Route: 065
  3. LINAGLIPTIN [Concomitant]
     Active Substance: LINAGLIPTIN
     Indication: Diabetes mellitus
     Dosage: 5 MILLIGRAM, QD (ONCE A DAY)
     Route: 065
  4. Telmisartan 80mg/Amlodipine 5mg [Concomitant]
     Indication: Hypertension
     Dosage: UNK, QD (TELMISARTAN 80MG/AMLODIPINE 5MG ONCE A DAY)
     Route: 065

REACTIONS (2)
  - Blindness [Recovered/Resolved]
  - Lactic acidosis [Not Recovered/Not Resolved]
